FAERS Safety Report 25508111 (Version 1)
Quarter: 2025Q3

REPORT INFORMATION
  Report Type: Spontaneous
  Country: CN (occurrence: CN)
  Receive Date: 20250703
  Receipt Date: 20250703
  Transmission Date: 20251021
  Serious: Yes (Death, Life-Threatening, Hospitalization)
  Sender: STRIDES
  Company Number: None

PATIENT
  Age: 10 Year
  Sex: Female

DRUGS (11)
  1. TACROLIMUS [Suspect]
     Active Substance: TACROLIMUS
     Indication: Immunosuppressant drug therapy
     Route: 065
  2. TACROLIMUS [Suspect]
     Active Substance: TACROLIMUS
     Indication: Glomerulonephritis rapidly progressive
  3. METHYLPREDNISOLONE [Suspect]
     Active Substance: METHYLPREDNISOLONE
     Indication: Immunosuppressant drug therapy
     Route: 065
  4. METHYLPREDNISOLONE [Suspect]
     Active Substance: METHYLPREDNISOLONE
     Indication: Glomerulonephritis rapidly progressive
  5. ALBUMIN HUMAN [Concomitant]
     Active Substance: ALBUMIN HUMAN
     Indication: Glomerulonephritis rapidly progressive
     Route: 065
  6. MAGNESIUM SULFATE [Concomitant]
     Active Substance: MAGNESIUM SULFATE
     Indication: Ecchymosis
     Route: 065
  7. Mucopolysaccharide polysulfate [Concomitant]
     Indication: Ecchymosis
     Route: 065
  8. PIPERACILLIN SODIUM\TAZOBACTAM SODIUM [Concomitant]
     Active Substance: PIPERACILLIN SODIUM\TAZOBACTAM SODIUM
     Indication: Evidence based treatment
     Route: 065
  9. IODINE [Concomitant]
     Active Substance: IODINE
     Indication: Evidence based treatment
     Route: 065
  10. IODINE [Concomitant]
     Active Substance: IODINE
     Indication: Ecchymosis
  11. CEFOPERAZONE SODIUM\SULBACTAM SODIUM [Concomitant]
     Active Substance: CEFOPERAZONE SODIUM\SULBACTAM SODIUM
     Indication: Evidence based treatment
     Route: 065

REACTIONS (4)
  - Respiratory failure [Fatal]
  - Pneumonia [Fatal]
  - COVID-19 [Fatal]
  - Cutaneous mucormycosis [Recovered/Resolved]
